FAERS Safety Report 18879675 (Version 1)
Quarter: 2021Q1

REPORT INFORMATION
  Report Type: Spontaneous
  Country: JP (occurrence: JP)
  Receive Date: 20210211
  Receipt Date: 20210211
  Transmission Date: 20210420
  Serious: Yes (Hospitalization)
  Sender: FDA-Public Use
  Company Number: JP-ENDO PHARMACEUTICALS INC-2021-001046

PATIENT
  Sex: Male

DRUGS (12)
  1. BUSULFAN. [Suspect]
     Active Substance: BUSULFAN
     Indication: CHEMOTHERAPY
     Dosage: 1.2 MG/KG, 16 TIMES EVERY 6 HOURS
     Route: 042
  2. CARBOPLATIN. [Suspect]
     Active Substance: CARBOPLATIN
     Indication: CHEMOTHERAPY
     Dosage: 1600 MG/M2, UNK
     Route: 065
  3. CYCLOPHOSPHAMIDE. [Concomitant]
     Active Substance: CYCLOPHOSPHAMIDE
     Indication: CHEMOTHERAPY
     Dosage: UNK
  4. VP?16 [Suspect]
     Active Substance: ETOPOSIDE
     Indication: CHEMOTHERAPY
     Dosage: 800 MG/M2, UNK
     Route: 065
  5. VINCRISTINE [Concomitant]
     Active Substance: VINCRISTINE
     Indication: CHEMOTHERAPY
     Dosage: UNK
  6. PIRARUBICIN [Concomitant]
     Active Substance: PIRARUBICIN
     Indication: CHEMOTHERAPY
     Dosage: UNK
  7. MELPHALAN HYDROCHLORIDE. [Suspect]
     Active Substance: MELPHALAN HYDROCHLORIDE
     Indication: CHEMOTHERAPY
     Dosage: 180 MG/M2, DISTRIBUTED OVER 2?3 CONSECUTIVE DAYS (MEC REGIMEN)
     Route: 065
  8. MELPHALAN HYDROCHLORIDE. [Suspect]
     Active Substance: MELPHALAN HYDROCHLORIDE
     Dosage: 150 MG/M2, DISTRIBUTED OVER 2?3 CONSECUTIVE DAYS (BUMEL REGIMEN)
     Route: 065
  9. DALTEPARIN [Concomitant]
     Active Substance: DALTEPARIN
     Indication: PROPHYLAXIS
  10. URSODEOXYCHOLIC ACID [Concomitant]
     Active Substance: URSODIOL
     Indication: PROPHYLAXIS
  11. GRANULOCYTE COLONY STIMULATING FACTOR [Concomitant]
     Active Substance: GRANULOCYTE COLONY-STIMULATING FACTOR NOS
     Indication: COLONY STIMULATING FACTOR THERAPY
  12. CISPLATIN. [Concomitant]
     Active Substance: CISPLATIN
     Indication: CHEMOTHERAPY
     Dosage: UNK

REACTIONS (3)
  - Acute kidney injury [Recovered/Resolved]
  - Off label use [Recovered/Resolved]
  - Gastrointestinal mucosal disorder [Recovered/Resolved]
